FAERS Safety Report 7339895-0 (Version None)
Quarter: 2011Q1

REPORT INFORMATION
  Report Type: 
  Country: None (occurrence: None)
  Receive Date: 20110309
  Receipt Date: 20110225
  Transmission Date: 20110831
  Serious: Yes (Hospitalization, Other)
  Sender: FDA-Public Use
  Company Number: US-ELI_LILLY_AND_COMPANY-US201103000095

PATIENT
  Sex: Female

DRUGS (21)
  1. RESTASIS [Concomitant]
     Dosage: 1 D/F, 2/D
  2. ZOLOFT [Concomitant]
     Dosage: 100 MG, EACH EVENING
  3. FORTEO [Suspect]
     Dosage: 20 UG, DAILY (1/D)
  4. FORTICAL /00371903/ [Concomitant]
     Route: 065
  5. ELMIRON [Concomitant]
     Dosage: 200 MG, 2/D
  6. ALBUTEROL [Concomitant]
  7. LYRICA [Concomitant]
     Dosage: 75 MG, 3/D
  8. SENOKOT [Concomitant]
     Dosage: 200 MG, 2/D
  9. MORPHINE SULFATE [Concomitant]
     Dosage: 2.5 MG, AS NEEDED
  10. ASA [Concomitant]
     Dosage: 81 MG, DAILY (1/D)
  11. MUCINEX [Concomitant]
     Dosage: 1200 MG, DAILY (1/D)
  12. BUMEX [Concomitant]
     Dosage: 1 MG, DAILY (1/D)
  13. FEXOFENADINE [Concomitant]
     Dosage: 180 MG, DAILY (1/D)
  14. FLONASE [Concomitant]
     Dosage: UNK, 2/D
  15. PROTONIX [Concomitant]
     Dosage: 40 MG, DAILY (1/D)
  16. K-TAB [Concomitant]
     Dosage: 10 MEQ, DAILY (1/D)
  17. VITAMIN D [Concomitant]
     Dosage: 50000 IU, UNK
  18. CYCLOBENZAPRINE [Concomitant]
     Dosage: 10 MG, 2/D
  19. ADVAIR [Concomitant]
  20. LAMICTAL [Concomitant]
     Dosage: 200 MG, EACH EVENING
  21. XALATAN [Concomitant]
     Dosage: 1 D/F, DAILY (1/D)

REACTIONS (3)
  - CERVICAL SPINAL STENOSIS [None]
  - HOSPITALISATION [None]
  - DEMENTIA [None]
